FAERS Safety Report 4540941-8 (Version None)
Quarter: 2004Q4

REPORT INFORMATION
  Report Type: 
  Country: None (occurrence: None)
  Receive Date: 20041229
  Receipt Date: 20041221
  Transmission Date: 20050328
  Serious: Yes (Other)
  Sender: FDA-Public Use
  Company Number: 2004-12-0257

PATIENT
  Age: 17 Year
  Sex: Female

DRUGS (6)
  1. CEFUROXIME AXETIL [Suspect]
     Dosage: 2TAB PER DAY
     Route: 048
  2. RANITIC [Suspect]
     Dosage: 5TAB PER DAY
     Route: 048
  3. NEDOLON [Suspect]
     Dosage: 6TAB PER DAY
     Route: 048
  4. AERIUS [Suspect]
     Dosage: 4TAB PER DAY
     Route: 048
  5. IBUPROFEN [Suspect]
     Dosage: 4TAB PER DAY
     Route: 048
  6. ROXITHROMYCIN [Suspect]
     Dosage: 2TAB PER DAY
     Route: 048

REACTIONS (4)
  - INTENTIONAL MISUSE [None]
  - MULTIPLE DRUG OVERDOSE INTENTIONAL [None]
  - SUICIDE ATTEMPT [None]
  - VOMITING [None]
